FAERS Safety Report 9109961 (Version 1)
Quarter: 2013Q1

REPORT INFORMATION
  Report Type: Report from Study
  Country: US (occurrence: US)
  Receive Date: 20130222
  Receipt Date: 20130222
  Transmission Date: 20140127
  Serious: Yes (Hospitalization)
  Sender: FDA-Public Use
  Company Number: US-ROCHE-1193322

PATIENT
  Age: 55 None
  Sex: Female
  Weight: 51.76 kg

DRUGS (3)
  1. XELODA [Suspect]
     Indication: COLORECTAL CANCER METASTATIC
     Route: 048
     Dates: start: 200707, end: 200708
  2. XELODA [Suspect]
     Dosage: 3 TABS IN THE MORNING AND 2 TABS IN EVENENING
     Route: 048
     Dates: start: 20130220
  3. RADIATION [Concomitant]
     Indication: COLORECTAL CANCER
     Route: 065
     Dates: start: 20130215

REACTIONS (3)
  - Colostomy [Recovered/Resolved]
  - Disease progression [Unknown]
  - Fatigue [Not Recovered/Not Resolved]
